FAERS Safety Report 25033818 (Version 1)
Quarter: 2025Q1

REPORT INFORMATION
  Report Type: Spontaneous
  Country: US (occurrence: US)
  Receive Date: 20250303
  Receipt Date: 20250303
  Transmission Date: 20250408
  Serious: No
  Sender: AMGEN
  Company Number: US-AMGEN-USASP2025039787

PATIENT
  Age: 51 Year
  Sex: Male
  Weight: 126.98 kg

DRUGS (6)
  1. NEULASTA [Suspect]
     Active Substance: PEGFILGRASTIM
     Indication: Prophylaxis
     Dosage: 6 MILLIGRAM, Q3WK
     Route: 065
     Dates: start: 2024
  2. CLARITIN [Concomitant]
     Active Substance: LORATADINE
     Indication: Product used for unknown indication
  3. DECADRON [Concomitant]
     Active Substance: DEXAMETHASONE
     Indication: Product used for unknown indication
     Dosage: UNK, Q3WK
  4. DOCETAXEL [Concomitant]
     Active Substance: DOCETAXEL
     Indication: Product used for unknown indication
     Dosage: UNK, Q3WK
  5. NUBEQA [Concomitant]
     Active Substance: DAROLUTAMIDE
     Indication: Product used for unknown indication
     Dosage: UNK, Q3WK
  6. ZOMETA [Concomitant]
     Active Substance: ZOLEDRONIC ACID
     Indication: Product used for unknown indication
     Dosage: UNK UNK, Q3WK
     Route: 065

REACTIONS (3)
  - Bone pain [Unknown]
  - Neutrophil count increased [Unknown]
  - White blood cell count increased [Unknown]

NARRATIVE: CASE EVENT DATE: 20240101
